FAERS Safety Report 9640145 (Version 1)
Quarter: 2013Q4

REPORT INFORMATION
  Report Type: Spontaneous
  Country: US (occurrence: US)
  Receive Date: 20131023
  Receipt Date: 20131023
  Transmission Date: 20140711
  Serious: No
  Sender: FDA-Public Use
  Company Number: US-PFIZER INC-2013299299

PATIENT
  Age: 32 Year
  Sex: Male
  Weight: 86.17 kg

DRUGS (2)
  1. ZYVOX [Suspect]
     Indication: LOCALISED INFECTION
     Dosage: 600 MG, 2X/DAY FOR 7 DAYS
     Route: 048
     Dates: start: 201309, end: 201310
  2. BACTRIM [Suspect]
     Indication: LOCALISED INFECTION
     Dosage: UNK
     Route: 048
     Dates: start: 201310, end: 201310

REACTIONS (2)
  - Drug ineffective [Not Recovered/Not Resolved]
  - Hypersensitivity [Not Recovered/Not Resolved]
